FAERS Safety Report 10073970 (Version 1)
Quarter: 2014Q2

REPORT INFORMATION
  Report Type: Spontaneous
  Country: IT (occurrence: IT)
  Receive Date: 20140413
  Receipt Date: 20140413
  Transmission Date: 20141212
  Serious: Yes (Disabling)
  Sender: FDA-Public Use
  Company Number: IT-MYLANLABS-2014S1007718

PATIENT
  Age: 71 Year
  Sex: Female

DRUGS (4)
  1. WARFARIN [Suspect]
     Indication: ATRIAL FIBRILLATION
     Dosage: 2.5MG DAILY
     Route: 065
  2. METOPROLOL [Concomitant]
     Route: 065
  3. FLECAINIDE [Concomitant]
     Route: 065
  4. VALSARTAN [Concomitant]
     Route: 065

REACTIONS (3)
  - Spinal cord haemorrhage [Not Recovered/Not Resolved]
  - Paraplegia [Not Recovered/Not Resolved]
  - Spinal cord compression [Not Recovered/Not Resolved]
